FAERS Safety Report 19664931 (Version 1)
Quarter: 2021Q3

REPORT INFORMATION
  Report Type: Spontaneous
  Country: US (occurrence: US)
  Receive Date: 20210806
  Receipt Date: 20210806
  Transmission Date: 20211014
  Serious: Yes (Other)
  Sender: FDA-Public Use
  Company Number: US-ACCORD-177934

PATIENT
  Age: 67 Year
  Sex: Female
  Weight: 114.31 kg

DRUGS (16)
  1. XARELTO [Concomitant]
     Active Substance: RIVAROXABAN
     Dates: start: 20180622, end: 20180830
  2. OXYCODONE HYDROCHLORIDE/PARACETAMOL [Concomitant]
     Active Substance: ACETAMINOPHEN\OXYCODONE HYDROCHLORIDE
     Dates: start: 20150830, end: 20180530
  3. ATENOLOL/ATENOLOL HYDROCHLORIDE [Concomitant]
     Active Substance: ATENOLOL HYDROCHLORIDE
     Dates: start: 20180622, end: 20180830
  4. PROAIR HFA [Concomitant]
     Active Substance: ALBUTEROL SULFATE
     Dates: start: 20121114, end: 20171230
  5. AMLODIPINE [Concomitant]
     Active Substance: AMLODIPINE BESYLATE
     Dates: start: 20180622, end: 20180830
  6. LOSARTAN. [Concomitant]
     Active Substance: LOSARTAN
     Dates: start: 20151021, end: 20171022
  7. PROMETHAZINE [Concomitant]
     Active Substance: PROMETHAZINE HYDROCHLORIDE
     Dates: start: 20110329, end: 20180625
  8. ANASTROZOLE. [Concomitant]
     Active Substance: ANASTROZOLE
     Dates: start: 20170830, end: 20180206
  9. MEDROXYPROGESTERONE [Concomitant]
     Active Substance: MEDROXYPROGESTERONE
     Dates: start: 20180622, end: 20180830
  10. SIMVASTATIN. [Concomitant]
     Active Substance: SIMVASTATIN
     Dates: start: 20121022, end: 20180830
  11. IBUPROFEN. [Concomitant]
     Active Substance: IBUPROFEN
     Dates: start: 20170728, end: 20180701
  12. CYCLOBENZAPRINE. [Concomitant]
     Active Substance: CYCLOBENZAPRINE
     Dates: start: 20180622, end: 20180830
  13. DOCETAXEL ACCORD [Suspect]
     Active Substance: DOCETAXEL
     Indication: BREAST CANCER
     Dates: start: 20170816, end: 20180323
  14. ONDANSETRON [Concomitant]
     Active Substance: ONDANSETRON
     Dates: start: 20171222, end: 20180121
  15. HYDROCHLOROTHIAZIDE. [Concomitant]
     Active Substance: HYDROCHLOROTHIAZIDE
     Dates: start: 20110330, end: 20171002
  16. GABAPENTIN. [Concomitant]
     Active Substance: GABAPENTIN
     Dates: start: 20100101

REACTIONS (1)
  - Alopecia [Not Recovered/Not Resolved]

NARRATIVE: CASE EVENT DATE: 20180323
